FAERS Safety Report 5286553-2 (Version None)
Quarter: 2007Q2

REPORT INFORMATION
  Report Type: 
  Country: None (occurrence: None)
  Receive Date: 20070404
  Receipt Date: 20070329
  Transmission Date: 20071010
  Serious: Yes (Death, Hospitalization)
  Sender: FDA-Public Use
  Company Number: CZ-ELI_LILLY_AND_COMPANY-CZ200703006519

PATIENT
  Age: 30 Year
  Sex: Female

DRUGS (2)
  1. ZYPREXA [Suspect]
     Indication: SCHIZOPHRENIA SIMPLE
     Dosage: 20 MG, DAILY (1/D)
     Route: 048
     Dates: start: 20060801
  2. SULPIRIDE [Concomitant]
     Indication: SCHIZOPHRENIA SIMPLE
     Dosage: 200 MG, DAILY (1/D)
     Route: 048
     Dates: start: 20061001

REACTIONS (3)
  - COMPLETED SUICIDE [None]
  - MENTAL DISORDER [None]
  - SUICIDAL IDEATION [None]
